FAERS Safety Report 9271614 (Version 1)
Quarter: 2013Q2

REPORT INFORMATION
  Report Type: Spontaneous
  Country: US (occurrence: US)
  Receive Date: 20130506
  Receipt Date: 20130506
  Transmission Date: 20140414
  Serious: Yes (Other)
  Sender: FDA-Public Use
  Company Number: US-PFIZER INC-2013139462

PATIENT
  Age: 80 Year
  Sex: Female

DRUGS (2)
  1. CHANTIX [Suspect]
     Dosage: UNK
     Route: 048
  2. VASOTEC [Suspect]
     Indication: BLOOD PRESSURE ABNORMAL
     Dosage: UNK
     Dates: start: 201304

REACTIONS (1)
  - Blood pressure increased [Unknown]
